FAERS Safety Report 14280798 (Version 1)
Quarter: 2017Q4

REPORT INFORMATION
  Report Type: Spontaneous
  Country: FR (occurrence: FR)
  Receive Date: 20171213
  Receipt Date: 20171213
  Transmission Date: 20180321
  Serious: Yes (Death, Life-Threatening, Hospitalization, Other)
  Sender: FDA-Public Use
  Company Number: FR-AUROBINDO-AUR-APL-2017-45052

PATIENT
  Age: 32 Year
  Sex: Male

DRUGS (1)
  1. PARACETAMOL [Suspect]
     Active Substance: ACETAMINOPHEN
     Indication: OROPHARYNGEAL PAIN
     Dosage: ()
     Route: 065

REACTIONS (7)
  - Neoplasm [Fatal]
  - Cardio-respiratory arrest [Fatal]
  - Death [Fatal]
  - Seizure [Fatal]
  - Cerebral haematoma [Fatal]
  - Dysphagia [Fatal]
  - Asphyxia [Fatal]
